FAERS Safety Report 8611604-4 (Version None)
Quarter: 2012Q3

REPORT INFORMATION
  Report Type: 
  Country: None (occurrence: None)
  Receive Date: 20120822
  Receipt Date: 20120813
  Transmission Date: 20120928
  Serious: Yes (Other)
  Sender: FDA-Public Use
  Company Number: JP-PFIZER INC-2012203496

PATIENT
  Age: 7 Decade
  Sex: Male

DRUGS (4)
  1. CISPLATIN [Suspect]
     Indication: THYMOMA MALIGNANT
     Dosage: UNK
     Dates: start: 20110801
  2. DOXORUBICIN HCL [Suspect]
     Indication: THYMOMA MALIGNANT
     Dosage: UNK
     Dates: start: 20110801
  3. VINCRISTINE [Suspect]
     Indication: THYMOMA MALIGNANT
     Dosage: UNK
     Dates: start: 20110801
  4. CYCLOPHOSPHAMIDE [Suspect]
     Indication: THYMOMA MALIGNANT
     Dosage: UNK
     Dates: start: 20110801

REACTIONS (2)
  - FEBRILE NEUTROPENIA [None]
  - PNEUMONIA BACTERIAL [None]
